FAERS Safety Report 13246238 (Version 1)
Quarter: 2017Q1

REPORT INFORMATION
  Report Type: Spontaneous
  Country: TH (occurrence: TH)
  Receive Date: 20170217
  Receipt Date: 20170217
  Transmission Date: 20170428
  Serious: Yes (Other)
  Sender: FDA-Public Use
  Company Number: TH-ACCORD-048233

PATIENT
  Age: 59 Year
  Sex: Female

DRUGS (1)
  1. DONEPEZIL/DONEPEZIL HYDROCHLORIDE [Suspect]
     Active Substance: DONEPEZIL HYDROCHLORIDE
     Indication: DEMENTIA ALZHEIMER^S TYPE
     Dosage: GRADUALLY TITRATED UP TO 15 MG/DAY FOR 3 MONTHS, THEN INCREASED TO 23  MG/DAY

REACTIONS (2)
  - Weight decreased [Unknown]
  - Parkinsonism [Recovering/Resolving]
